FAERS Safety Report 4553914-6 (Version None)
Quarter: 2005Q1

REPORT INFORMATION
  Report Type: 
  Country: None (occurrence: None)
  Receive Date: 20050118
  Receipt Date: 20040105
  Transmission Date: 20050727
  Serious: Yes (Other)
  Sender: FDA-Public Use
  Company Number: CH-NOVOPROD-241516

PATIENT
  Age: 59 Year
  Sex: Female
  Weight: 60 kg

DRUGS (1)
  1. VAGIFEM [Suspect]
     Indication: VAGINAL DISORDER
     Route: 067
     Dates: start: 20040801, end: 20041031

REACTIONS (1)
  - SYSTEMIC LUPUS ERYTHEMATOSUS [None]
